FAERS Safety Report 9549815 (Version 2)
Quarter: 2014Q2

REPORT INFORMATION
  Report Type: Report from Study
  Country: VE (occurrence: VE)
  Receive Date: 20130924
  Receipt Date: 20140515
  Transmission Date: 20141212
  Serious: Yes (Hospitalization, Other)
  Sender: FDA-Public Use
  Company Number: VE-ABBVIE-13P-178-1149970-00

PATIENT
  Age: 55 Year
  Sex: Male

DRUGS (1)
  1. ZEMPLAR [Suspect]
     Indication: NEPHROPATHY
     Dosage: 10MCG
     Route: 042
     Dates: start: 201004

REACTIONS (3)
  - Cardiac disorder [Unknown]
  - Coronary artery occlusion [Unknown]
  - Arteriosclerosis [Unknown]
